FAERS Safety Report 21402776 (Version 1)
Quarter: 2022Q4

REPORT INFORMATION
  Report Type: Spontaneous
  Country: AR (occurrence: AR)
  Receive Date: 20221003
  Receipt Date: 20221003
  Transmission Date: 20230113
  Serious: Yes (Other)
  Sender: FDA-Public Use
  Company Number: AR-NOVARTISPH-NVSC2022AR221396

PATIENT
  Sex: Female

DRUGS (1)
  1. ACLASTA [Suspect]
     Active Substance: ZOLEDRONIC ACID
     Indication: Osteogenesis imperfecta
     Dosage: 5 MG (0.3 ML OF ACLASTA DILUTED WITH 100 ML OF SERUM)
     Route: 041
     Dates: end: 202205

REACTIONS (4)
  - Vein collapse [Unknown]
  - Pain [Unknown]
  - Nervousness [Unknown]
  - Product use in unapproved indication [Unknown]
